FAERS Safety Report 7062767-6 (Version None)
Quarter: 2010Q4

REPORT INFORMATION
  Report Type: 
  Country: None (occurrence: None)
  Receive Date: 20101026
  Receipt Date: 20100204
  Transmission Date: 20110411
  Serious: No
  Sender: FDA-Public Use
  Company Number: US-PFIZER INC-2010017025

PATIENT
  Sex: Female
  Weight: 78.5 kg

DRUGS (5)
  1. LIPITOR [Suspect]
     Indication: BLOOD CHOLESTEROL INCREASED
     Dosage: 20 MG, 1X/DAY
     Route: 048
  2. REGLAN [Concomitant]
     Indication: GASTROOESOPHAGEAL REFLUX DISEASE
     Dosage: 5 MG, 1X/DAY
     Route: 048
  3. PREVACID [Concomitant]
     Indication: GASTROOESOPHAGEAL REFLUX DISEASE
     Dosage: 15 MG, 1X/DAY
     Route: 048
  4. DYAZIDE [Concomitant]
     Indication: FLUID RETENTION
     Dosage: UNK, ONCE DAILY
     Route: 048
  5. NORVASC [Concomitant]
     Indication: BLOOD PRESSURE INCREASED
     Dosage: UNK
     Route: 048

REACTIONS (2)
  - PARAESTHESIA [None]
  - TRICHORRHEXIS [None]
